FAERS Safety Report 4932836-2 (Version None)
Quarter: 2006Q1

REPORT INFORMATION
  Report Type: 
  Country: None (occurrence: None)
  Receive Date: 20060306
  Receipt Date: 20060222
  Transmission Date: 20060701
  Serious: Yes (Other)
  Sender: FDA-Public Use
  Company Number: PHFR2006GB00946

PATIENT
  Age: 4 Year
  Sex: Male

DRUGS (2)
  1. NALCROM [Concomitant]
     Route: 065
  2. ZADITEN [Suspect]
     Indication: FOOD ALLERGY
     Dosage: 5ML
     Route: 065

REACTIONS (3)
  - ABNORMAL DREAMS [None]
  - MIDDLE INSOMNIA [None]
  - SYNCOPE [None]
